FAERS Safety Report 9780768 (Version 2)
Quarter: 2014Q1

REPORT INFORMATION
  Report Type: Spontaneous
  Country: MX (occurrence: MX)
  Receive Date: 20131224
  Receipt Date: 20140120
  Transmission Date: 20141002
  Serious: Yes (Other)
  Sender: FDA-Public Use
  Company Number: PHHY2013MX149838

PATIENT
  Age: 59 Year
  Sex: Female

DRUGS (4)
  1. TEGRETOL [Suspect]
     Indication: EPILEPSY
     Dosage: 4 DF, DAILY
     Route: 048
  2. CARBAMAZEPINE [Suspect]
     Dosage: UNK UKN, UNK
  3. ATEMPERATOR//VALPROATE MAGNESIUM [Concomitant]
     Indication: EPILEPSY
     Dosage: 4 UKN, DAILY
  4. EPAMIN [Concomitant]
     Indication: EPILEPSY
     Dosage: 2 UKN, UNK

REACTIONS (8)
  - Ligament sprain [Recovering/Resolving]
  - Fall [Recovered/Resolved]
  - Injury [Recovered/Resolved]
  - Anxiety [Not Recovered/Not Resolved]
  - Blood pressure increased [Recovered/Resolved]
  - Blood pressure abnormal [Not Recovered/Not Resolved]
  - Convulsion [Recovered/Resolved]
  - Drug ineffective [Not Recovered/Not Resolved]
